FAERS Safety Report 17785718 (Version 3)
Quarter: 2020Q3

REPORT INFORMATION
  Report Type: Spontaneous
  Country: US (occurrence: US)
  Receive Date: 20200514
  Receipt Date: 20200901
  Transmission Date: 20201102
  Serious: No
  Sender: FDA-Public Use
  Company Number: US-VERTEX PHARMACEUTICALS-2020-010714

PATIENT
  Age: 17 Year
  Sex: Male
  Weight: 66 kg

DRUGS (9)
  1. URSODIOL. [Concomitant]
     Active Substance: URSODIOL
     Dosage: UNK
  2. TRIKAFTA [Suspect]
     Active Substance: ELEXACAFTOR\IVACAFTOR\TEZACAFTOR
     Indication: CYSTIC FIBROSIS
     Dosage: 2 ORANGE TABS (100 MG ELEXA/50 MG TEZA/75 MG IVA) AM AND 1 BLUE TAB (150 MG IVA) PM
     Route: 048
     Dates: start: 20200128, end: 202005
  3. CREON [Concomitant]
     Active Substance: PANCRELIPASE AMYLASE\PANCRELIPASE LIPASE\PANCRELIPASE PROTEASE
     Dosage: UNK
  4. AZITHROMYCIN ANHYDROUS. [Concomitant]
     Active Substance: AZITHROMYCIN ANHYDROUS
     Dosage: UNK
  5. PHYTONADIONE. [Concomitant]
     Active Substance: PHYTONADIONE
     Dosage: UNK
  6. TRIKAFTA [Suspect]
     Active Substance: ELEXACAFTOR\IVACAFTOR\TEZACAFTOR
     Dosage: 2 ORANGE TABS (100 MG ELEXA/50 MG TEZA/75 MG IVA) AM AND 1 TAB (150 MG IVA) PM
     Route: 048
     Dates: start: 20200818
  7. FAMOTIDINE. [Concomitant]
     Active Substance: FAMOTIDINE
     Dosage: UNK
  8. OMEPRAZOLE. [Concomitant]
     Active Substance: OMEPRAZOLE
     Dosage: UNK
  9. PULMOZYME [Concomitant]
     Active Substance: DORNASE ALFA

REACTIONS (2)
  - Sinus disorder [Unknown]
  - Exfoliative rash [Recovering/Resolving]

NARRATIVE: CASE EVENT DATE: 202002
